FAERS Safety Report 9220642 (Version 1)
Quarter: 2013Q2

REPORT INFORMATION
  Report Type: Report from Study
  Country: US (occurrence: US)
  Receive Date: 20130409
  Receipt Date: 20130409
  Transmission Date: 20140414
  Serious: Yes (Other)
  Sender: FDA-Public Use
  Company Number: US-ACTELION-A-US2013-81378

PATIENT
  Age: 38 Year
  Sex: Female

DRUGS (1)
  1. TRACLEER [Suspect]
     Indication: PULMONARY ARTERIAL HYPERTENSION
     Dosage: UNK
     Route: 048

REACTIONS (6)
  - Fibromyalgia [Unknown]
  - Ankle fracture [Unknown]
  - Hypotension [Unknown]
  - Ligament sprain [Unknown]
  - Arthralgia [Unknown]
  - Butterfly rash [Unknown]
